FAERS Safety Report 7771291-4 (Version None)
Quarter: 2011Q3

REPORT INFORMATION
  Report Type: 
  Country: None (occurrence: None)
  Receive Date: 20110922
  Receipt Date: 20110915
  Transmission Date: 20111222
  Serious: Yes (Hospitalization)
  Sender: FDA-Public Use
  Company Number: GB-AMGEN-GBRCT2011045940

PATIENT
  Age: 59 Year
  Sex: Male
  Weight: 118.2 kg

DRUGS (10)
  1. LYMECYCLINE [Concomitant]
     Indication: RASH
     Route: 048
     Dates: start: 20110720
  2. HYDROCORTISONE [Concomitant]
     Indication: RASH
     Route: 061
     Dates: start: 20110720
  3. RAMIPRIL [Concomitant]
     Route: 048
     Dates: start: 20060615
  4. METOCLOPRAMIDE [Concomitant]
     Indication: NAUSEA
     Route: 048
     Dates: start: 20110812
  5. PANITUMUMAB [Suspect]
     Indication: COLON CANCER
  6. PANITUMUMAB [Suspect]
     Dosage: ADVERSE EVENT
  7. FINASTERIDE [Concomitant]
     Indication: BENIGN PROSTATIC HYPERPLASIA
     Dosage: UNK
     Route: 048
     Dates: start: 20101215
  8. FINASTERIDE [Concomitant]
     Route: 048
     Dates: start: 20101215
  9. SPIRONOLACTONE [Concomitant]
     Route: 048
     Dates: start: 20110802
  10. RAMIPRIL [Concomitant]
     Indication: HYPERTENSION
     Dosage: UNK
     Route: 048
     Dates: start: 20060615

REACTIONS (1)
  - ELECTROLYTE IMBALANCE [None]
